FAERS Safety Report 4613842-4 (Version None)
Quarter: 2005Q1

REPORT INFORMATION
  Report Type: 
  Country: None (occurrence: None)
  Receive Date: 20050321
  Receipt Date: 20050314
  Transmission Date: 20050727
  Serious: Yes (Other)
  Sender: FDA-Public Use
  Company Number: US-BRISTOL-MYERS SQUIBB COMPANY-12896411

PATIENT
  Age: 95 Year
  Sex: Female

DRUGS (3)
  1. GATIFLOXACIN IV [Suspect]
     Indication: LOBAR PNEUMONIA
     Route: 042
  2. GATIFLOXACIN IV [Suspect]
     Indication: URINARY TRACT INFECTION
     Route: 042
  3. DIGOXIN [Concomitant]
     Route: 048

REACTIONS (1)
  - TORSADE DE POINTES [None]
